FAERS Safety Report 24278243 (Version 1)
Quarter: 2024Q3

REPORT INFORMATION
  Report Type: Spontaneous
  Country: US (occurrence: None)
  Receive Date: 20240830
  Receipt Date: 20240830
  Transmission Date: 20241017
  Serious: Yes (Other)
  Sender: Public
  Company Number: None

PATIENT
  Age: 73 Year
  Sex: Female

DRUGS (1)
  1. TREMFYA [Suspect]
     Active Substance: GUSELKUMAB
     Indication: Pain in extremity
     Dosage: 100MG  EVERY 8 WEEKS SUBCUTANEOUS
     Route: 058

REACTIONS (2)
  - COVID-19 [None]
  - Therapy interrupted [None]
